FAERS Safety Report 6973961-4 (Version None)
Quarter: 2010Q3

REPORT INFORMATION
  Report Type: 
  Country: None (occurrence: None)
  Receive Date: 20100909
  Receipt Date: 20100830
  Transmission Date: 20110219
  Serious: Yes (Death)
  Sender: FDA-Public Use
  Company Number: GXKR2010SE09896

PATIENT
  Age: 20 Year
  Sex: Female

DRUGS (4)
  1. CITALOPRAM HYDROBROMIDE [Suspect]
     Route: 065
  2. SALICYLIC ACID [Suspect]
     Route: 065
  3. AMFETAMINE [Suspect]
     Route: 065
  4. COCAINE [Suspect]
     Route: 065

REACTIONS (1)
  - DEATH [None]
